FAERS Safety Report 5105962-5 (Version None)
Quarter: 2006Q3

REPORT INFORMATION
  Report Type: 
  Country: None (occurrence: None)
  Receive Date: 20060915
  Receipt Date: 20060906
  Transmission Date: 20061208
  Serious: Yes (Death, Hospitalization)
  Sender: FDA-Public Use
  Company Number: MW-GILEAD-2006-0010183

PATIENT
  Age: 32 Year
  Sex: Female
  Weight: 54 kg

DRUGS (5)
  1. EMTRICITABINE [Suspect]
     Indication: HIV INFECTION
     Dates: start: 20060426, end: 20060821
  2. DIDANOSINE [Suspect]
     Indication: HIV INFECTION
     Dates: start: 20060426, end: 20060821
  3. ATAZANAVIR [Suspect]
     Indication: HIV INFECTION
     Dates: start: 20060426, end: 20060821
  4. BACTRIM [Concomitant]
  5. FESO4 [Concomitant]
     Indication: ANAEMIA

REACTIONS (9)
  - ACIDOSIS [None]
  - ANAEMIA [None]
  - CARDIOMEGALY [None]
  - COUGH [None]
  - HEPATITIS [None]
  - MALARIA [None]
  - PANCREATITIS [None]
  - PLEURAL EFFUSION [None]
  - PNEUMONIA [None]
